FAERS Safety Report 5569368-7 (Version None)
Quarter: 2007Q4

REPORT INFORMATION
  Report Type: 
  Country: None (occurrence: None)
  Receive Date: 20071218
  Receipt Date: 20071203
  Transmission Date: 20080405
  Serious: Yes (Life-Threatening, Hospitalization)
  Sender: FDA-Public Use
  Company Number: 2007S1013063

PATIENT
  Age: 68 Year
  Sex: Female

DRUGS (12)
  1. ATENOLOL [Suspect]
     Indication: HYPERTENSION
     Dosage: 100 MG;DAILY
     Route: 048
     Dates: end: 20071024
  2. AMITRIPTYLINE HCL [Concomitant]
  3. ASPIRIN [Concomitant]
  4. ATORVASTATIN CALCIUM [Concomitant]
  5. CO-AMILOFRUSE; 1 DF; ORAL;DAILY [Suspect]
     Dosage: 1 DF;ORAL;DAILY
     Route: 048
     Dates: end: 20071024
  6. NIFEDIPINE (NIFEDIPINE); 90 MG;ORAL;DAILY [Suspect]
     Dosage: 90 MG;DAILY
     Route: 048
     Dates: end: 20071024
  7. COD LIVER OIL FORTIFIED TAB [Concomitant]
  8. CO-PROXAMOL / 00016701/ (DI-GESIC /00016701/) [Concomitant]
  9. GLYBURIDE [Concomitant]
  10. IBUPROFEN [Concomitant]
  11. INSULATED /00646001/  (INSULIN HUMAN) [Concomitant]
  12. METFORMIN (METFORMIN) [Concomitant]

REACTIONS (6)
  - ATRIOVENTRICULAR BLOCK COMPLETE [None]
  - BLOOD GLUCOSE INCREASED [None]
  - BRADYCARDIA [None]
  - HYPOTENSION [None]
  - LACTIC ACIDOSIS [None]
  - MALAISE [None]
